FAERS Safety Report 8947610 (Version 1)
Quarter: 2012Q4

REPORT INFORMATION
  Report Type: 
  Country: DE (occurrence: DE)
  Receive Date: 20121205
  Receipt Date: 20121205
  Transmission Date: 20130627
  Serious: Yes (Life-Threatening, Other)
  Sender: FDA-Public Use
  Company Number: DE-ROCHE-1159701

PATIENT

DRUGS (6)
  1. TRASTUZUMAB [Suspect]
     Indication: BREAST CANCER METASTATIC
     Route: 042
  2. TRASTUZUMAB [Suspect]
     Route: 042
  3. PACLITAXEL [Suspect]
     Indication: BREAST CANCER METASTATIC
     Route: 042
  4. DEXAMETHASONE [Concomitant]
     Route: 065
  5. CLEMASTINE [Concomitant]
     Route: 065
  6. RANITIDINE [Concomitant]
     Route: 065

REACTIONS (13)
  - Diarrhoea [Unknown]
  - Leukopenia [Unknown]
  - Dyspnoea [Unknown]
  - Thrombocytopenia [Unknown]
  - Anaemia [Unknown]
  - Constipation [Unknown]
  - Neuropathy peripheral [Unknown]
  - Arthralgia [Unknown]
  - Myalgia [Unknown]
  - Pulmonary function test decreased [Unknown]
  - Pain [Unknown]
  - Hepatic enzyme increased [Unknown]
  - Hypersensitivity [Unknown]
